FAERS Safety Report 25674046 (Version 4)
Quarter: 2025Q3

REPORT INFORMATION
  Report Type: Report from Study
  Country: CA (occurrence: CA)
  Receive Date: 20250813
  Receipt Date: 20250924
  Transmission Date: 20251020
  Serious: Yes (Hospitalization, Other)
  Sender: ALEXION PHARMACEUTICALS
  Company Number: CA-AstraZeneca-CH-00894558A

PATIENT
  Age: 69 Year
  Sex: Male

DRUGS (2)
  1. ULTOMIRIS [Suspect]
     Active Substance: RAVULIZUMAB-CWVZ
     Indication: Myasthenia gravis
     Dates: start: 20250527, end: 20250527
  2. ULTOMIRIS [Suspect]
     Active Substance: RAVULIZUMAB-CWVZ

REACTIONS (9)
  - Localised infection [Unknown]
  - Tachycardia [Unknown]
  - Urinary tract infection [Unknown]
  - Atrial fibrillation [Unknown]
  - Sepsis [Unknown]
  - Fall [Unknown]
  - Pneumonia [Unknown]
  - Muscular weakness [Unknown]
  - Wound [Unknown]

NARRATIVE: CASE EVENT DATE: 20250608
